FAERS Safety Report 19686888 (Version 1)
Quarter: 2021Q3

REPORT INFORMATION
  Report Type: Spontaneous
  Country: BR (occurrence: BR)
  Receive Date: 20210811
  Receipt Date: 20210811
  Transmission Date: 20211014
  Serious: Yes (Other)
  Sender: FDA-Public Use
  Company Number: BR-DSJP-DSU-2021-125269

PATIENT
  Sex: Female

DRUGS (1)
  1. OLMETEC HCT [Suspect]
     Active Substance: HYDROCHLOROTHIAZIDE\OLMESARTAN MEDOXOMIL
     Indication: PRODUCT USED FOR UNKNOWN INDICATION
     Dosage: 40MG + 12.5MG
     Route: 065
     Dates: start: 2011

REACTIONS (2)
  - Gastric cancer [Recovering/Resolving]
  - Malignant melanoma [Unknown]

NARRATIVE: CASE EVENT DATE: 2016
